FAERS Safety Report 5929575-8 (Version None)
Quarter: 2008Q4

REPORT INFORMATION
  Report Type: 
  Country: None (occurrence: None)
  Receive Date: 20081024
  Receipt Date: 20081020
  Transmission Date: 20090506
  Serious: Yes (Other)
  Sender: FDA-Public Use
  Company Number: US-MERCK-0810USA03826

PATIENT

DRUGS (1)
  1. FOSAMAX [Suspect]
     Route: 048
     Dates: start: 20050101

REACTIONS (1)
  - HIP FRACTURE [None]
